FAERS Safety Report 23394933 (Version 1)
Quarter: 2024Q1

REPORT INFORMATION
  Report Type: Report from Study
  Country: US (occurrence: US)
  Receive Date: 20240112
  Receipt Date: 20240112
  Transmission Date: 20240410
  Serious: Yes (Death, Hospitalization, Other)
  Sender: FDA-Public Use
  Company Number: US-SEATTLE GENETICS-2023SGN13311

PATIENT
  Age: 74 Year
  Sex: Female

DRUGS (1)
  1. TUCATINIB [Suspect]
     Active Substance: TUCATINIB
     Indication: Breast cancer metastatic
     Dosage: 300 MG, BID
     Route: 048
     Dates: start: 20230314, end: 20230531

REACTIONS (5)
  - Death [Fatal]
  - Urinary tract infection [Unknown]
  - Asthenia [Unknown]
  - Gait disturbance [Unknown]
  - Paralysis [Unknown]

NARRATIVE: CASE EVENT DATE: 20231219
